FAERS Safety Report 13689917 (Version 2)
Quarter: 2017Q4

REPORT INFORMATION
  Report Type: Spontaneous
  Country: US (occurrence: US)
  Receive Date: 20170626
  Receipt Date: 20171229
  Transmission Date: 20180320
  Serious: Yes (Life-Threatening, Other)
  Sender: FDA-Public Use
  Company Number: US-PFIZER INC-2017099191

PATIENT
  Age: 29 Year
  Sex: Female
  Weight: 87.3 kg

DRUGS (8)
  1. LIDOCAINE HCL [Suspect]
     Active Substance: LIDOCAINE HYDROCHLORIDE
     Indication: ANAESTHESIA
     Dosage: 2 ML, UNK
  2. FENTANYL CITRATE. [Suspect]
     Active Substance: FENTANYL CITRATE
     Indication: ANALGESIC THERAPY
     Dosage: 0.3 ML, UNK
     Route: 037
  3. SODIUM CITRATE. [Concomitant]
     Active Substance: SODIUM CITRATE
     Indication: PROPHYLAXIS
     Dosage: UNK
     Route: 048
  4. BUPIVACAINE HCL [Suspect]
     Active Substance: BUPIVACAINE HYDROCHLORIDE
     Indication: SPINAL ANAESTHESIA
     Dosage: 0.5 ML, UNK
     Route: 037
  5. FENTANYL CITRATE. [Suspect]
     Active Substance: FENTANYL CITRATE
     Dosage: 2.5 UG/ML, (BASAL RATE OF 6 ML/H WITH A BOLUS OF 6 ML)
     Route: 008
  6. BUPIVACAINE HCL [Suspect]
     Active Substance: BUPIVACAINE HYDROCHLORIDE
     Indication: EPIDURAL ANAESTHESIA
     Dosage: UNK
     Route: 008
  7. EPINEPHRINE/LIDOCAINE HYDROCHLORIDE [Suspect]
     Active Substance: EPINEPHRINE\LIDOCAINE HYDROCHLORIDE
     Indication: EPIDURAL TEST DOSE
     Dosage: 3-ML TEST DOSE (LIDOCAINE 1.5% AND EPINEPHRINE 1:200,000)
  8. CHLORHEXIDINE [Concomitant]
     Active Substance: CHLORHEXIDINE
     Dosage: UNK

REACTIONS (10)
  - Renal failure [None]
  - Hypertension [None]
  - Palpitations [None]
  - Hypoalbuminaemia [None]
  - Incorrect route of drug administration [Unknown]
  - Anaesthetic complication [None]
  - Dysgeusia [None]
  - Toxicity to various agents [Recovered/Resolved]
  - Tinnitus [None]
  - Sinus tachycardia [None]
